FAERS Safety Report 23770033 (Version 1)
Quarter: 2024Q2

REPORT INFORMATION
  Report Type: Spontaneous
  Country: CN (occurrence: CN)
  Receive Date: 20240422
  Receipt Date: 20240422
  Transmission Date: 20240716
  Serious: Yes (Disabling)
  Sender: FDA-Public Use
  Company Number: CN-PFIZER INC-PV202400051536

PATIENT
  Age: 6 Year
  Sex: Male
  Weight: 18 kg

DRUGS (2)
  1. AZITHROMYCIN [Suspect]
     Active Substance: AZITHROMYCIN
     Indication: Anti-infective therapy
     Dosage: 0.1 G, 1X/DAY
     Route: 048
     Dates: start: 20240413, end: 20240413
  2. FEI LI KE [Concomitant]
     Indication: Cough
     Dosage: 10 ML, 3X/DAY
     Route: 048
     Dates: start: 20240413, end: 20240413

REACTIONS (7)
  - Rash erythematous [Recovering/Resolving]
  - Pruritus [Recovering/Resolving]
  - Blister [Recovering/Resolving]
  - Nausea [Recovering/Resolving]
  - Vomiting [Recovering/Resolving]
  - Drug hypersensitivity [Recovering/Resolving]
  - Off label use [Unknown]

NARRATIVE: CASE EVENT DATE: 20240413
